FAERS Safety Report 13671193 (Version 1)
Quarter: 2017Q2

REPORT INFORMATION
  Report Type: Spontaneous
  Country: US (occurrence: US)
  Receive Date: 20170620
  Receipt Date: 20170620
  Transmission Date: 20170830
  Serious: No
  Sender: FDA-Public Use
  Company Number: US-ROCHE-1361106

PATIENT
  Age: 76 Year
  Sex: Female

DRUGS (8)
  1. XELODA [Suspect]
     Active Substance: CAPECITABINE
     Route: 048
  2. ZOFRAN [Concomitant]
     Active Substance: ONDANSETRON HYDROCHLORIDE
  3. ONDANSETRON [Concomitant]
     Active Substance: ONDANSETRON
  4. XELODA [Suspect]
     Active Substance: CAPECITABINE
     Indication: BREAST CANCER
     Dosage: 14/21 DAYS
     Route: 048
     Dates: start: 20140124
  5. MORPHINE [Concomitant]
     Active Substance: MORPHINE
  6. XELODA [Suspect]
     Active Substance: CAPECITABINE
     Route: 048
  7. XELODA [Suspect]
     Active Substance: CAPECITABINE
     Dosage: 2500 MG DIVIDED FOR 2 CYCLE -1500 MG IN AM 1000 MG IN PM
     Route: 048
     Dates: start: 20140730
  8. OMEPRAZOLE. [Concomitant]
     Active Substance: OMEPRAZOLE

REACTIONS (6)
  - Nausea [Not Recovered/Not Resolved]
  - Abdominal pain [Not Recovered/Not Resolved]
  - Nodule [Unknown]
  - Dry skin [Unknown]
  - Abdominal distension [Not Recovered/Not Resolved]
  - Flatulence [Not Recovered/Not Resolved]

NARRATIVE: CASE EVENT DATE: 20140417
